FAERS Safety Report 19206049 (Version 3)
Quarter: 2022Q4

REPORT INFORMATION
  Report Type: Spontaneous
  Country: NL (occurrence: NL)
  Receive Date: 20210503
  Receipt Date: 20221031
  Transmission Date: 20230113
  Serious: Yes (Death, Other)
  Sender: FDA-Public Use
  Company Number: NVSC2021NL098464

PATIENT
  Sex: Female

DRUGS (9)
  1. PREDNISOLONE [Suspect]
     Active Substance: PREDNISOLONE
     Indication: Product used for unknown indication
     Dosage: UNK
     Route: 065
     Dates: start: 20191213
  2. COLCHICINE [Suspect]
     Active Substance: COLCHICINE
     Indication: Gout
     Dosage: 4.5 MG, QD
     Route: 065
     Dates: start: 201911, end: 2019
  3. COLCHICINE [Suspect]
     Active Substance: COLCHICINE
     Dosage: 0.5 MG, TID
     Route: 065
  4. COLCHICINE [Suspect]
     Active Substance: COLCHICINE
     Dosage: 1.5 MG, QD
     Route: 065
     Dates: start: 201911, end: 2019
  5. OXYCODONE [Suspect]
     Active Substance: OXYCODONE
     Indication: Pain
     Dosage: UNK
     Route: 065
     Dates: start: 20191213
  6. MORPHINE [Suspect]
     Active Substance: MORPHINE
     Indication: Analgesic therapy
     Dosage: 20 MG
     Route: 058
     Dates: start: 201912
  7. MORPHINE [Suspect]
     Active Substance: MORPHINE
     Indication: Pain
     Dosage: ONCE
     Route: 065
     Dates: start: 20191214
  8. MOVICOL [Suspect]
     Active Substance: POLYETHYLENE GLYCOL 3350\POTASSIUM CHLORIDE\SODIUM BICARBONATE\SODIUM CHLORIDE
     Indication: Constipation
     Dosage: UNK UNK, PRN
     Route: 065
  9. MOVICOL [Suspect]
     Active Substance: POLYETHYLENE GLYCOL 3350\POTASSIUM CHLORIDE\SODIUM BICARBONATE\SODIUM CHLORIDE
     Dosage: UNK UNK, PRN
     Route: 065

REACTIONS (19)
  - Death [Fatal]
  - Diarrhoea [Recovering/Resolving]
  - Unevaluable event [Unknown]
  - Dysphagia [Unknown]
  - Incontinence [Recovering/Resolving]
  - Pain in extremity [Unknown]
  - Dizziness [Unknown]
  - Ill-defined disorder [Unknown]
  - Asthenia [Not Recovered/Not Resolved]
  - Condition aggravated [Not Recovered/Not Resolved]
  - Decreased appetite [Unknown]
  - Lethargy [Unknown]
  - Weight decreased [Unknown]
  - Off label use [Unknown]
  - Diet refusal [Unknown]
  - General physical health deterioration [Not Recovered/Not Resolved]
  - Defaecation disorder [Recovering/Resolving]
  - Feeling abnormal [Unknown]
  - Incorrect product administration duration [Unknown]

NARRATIVE: CASE EVENT DATE: 20190101
